FAERS Safety Report 8562644 (Version 2)
Quarter: 2012Q4

REPORT INFORMATION
  Report Type: 
  Country: US (occurrence: US)
  Receive Date: 20120515
  Receipt Date: 20120830
  Transmission Date: 20130627
  Serious: Yes (Other)
  Sender: FDA-Public Use
  Company Number: US-ASTRAZENECA-2012SE29516

PATIENT
  Age: 87 Year
  Sex: Female

DRUGS (2)
  1. CRESTOR [Suspect]
     Route: 048
  2. CELEBREX [Suspect]

REACTIONS (2)
  - Myocardial infarction [Unknown]
  - Tooth fracture [Unknown]
